FAERS Safety Report 21696197 (Version 1)
Quarter: 2022Q4

REPORT INFORMATION
  Report Type: Spontaneous
  Country: US (occurrence: None)
  Receive Date: 20221207
  Receipt Date: 20221207
  Transmission Date: 20230112
  Serious: Yes (Hospitalization)
  Sender: FDA-Public Use
  Company Number: None

PATIENT
  Sex: Female

DRUGS (3)
  1. EVEROLIMUS [Suspect]
     Active Substance: EVEROLIMUS
     Indication: Lung transplant
     Dosage: 0.5 MG ORAL??TAKE 3 TABLETS (1.5 MG TOTAL) BY MOUTH EVERY MORNING AND 4 TABLETS (2 MG TOTAL) EVERY E
     Route: 048
     Dates: start: 20221110
  2. TACROLIMUS [Concomitant]
     Active Substance: TACROLIMUS
  3. ZORTRESS [Concomitant]
     Active Substance: EVEROLIMUS

REACTIONS (2)
  - Dyspnoea [None]
  - Chest pain [None]
